FAERS Safety Report 8044529-6 (Version None)
Quarter: 2012Q1

REPORT INFORMATION
  Report Type: 
  Country: None (occurrence: None)
  Receive Date: 20120113
  Receipt Date: 20120109
  Transmission Date: 20120608
  Serious: Yes (Death)
  Sender: FDA-Public Use
  Company Number: US-SANOFI-AVENTIS-2012SA001741

PATIENT
  Age: 41 Year
  Sex: Male

DRUGS (5)
  1. ELOXATIN [Suspect]
     Route: 065
     Dates: start: 20110909, end: 20110909
  2. ELOXATIN [Suspect]
     Route: 065
     Dates: start: 20110826, end: 20110826
  3. AVASTIN [Suspect]
     Route: 065
  4. THERAPEUTIC RADIOPHARMACEUTICALS [Concomitant]
  5. ELOXATIN [Suspect]
     Route: 065
     Dates: start: 20110923, end: 20110923

REACTIONS (2)
  - DEATH [None]
  - OFF LABEL USE [None]
